FAERS Safety Report 13117304 (Version 1)
Quarter: 2017Q1

REPORT INFORMATION
  Report Type: Spontaneous
  Country: US (occurrence: US)
  Receive Date: 20170116
  Receipt Date: 20170116
  Transmission Date: 20170428
  Serious: No
  Sender: FDA-Public Use
  Company Number: US-BAXALTA-2017BLT000022

PATIENT
  Age: 58 Year
  Sex: Female

DRUGS (1)
  1. CUVITRU [Suspect]
     Active Substance: HUMAN IMMUNOGLOBULIN G
     Indication: PRODUCT USED FOR UNKNOWN INDICATION
     Dosage: 26 G, UNK
     Route: 058
     Dates: start: 20161221

REACTIONS (8)
  - Dyspnoea [Recovered/Resolved]
  - Chest discomfort [Recovered/Resolved]
  - Abdominal pain [Not Recovered/Not Resolved]
  - Infusion site swelling [Recovered/Resolved]
  - Diarrhoea [Not Recovered/Not Resolved]
  - Infusion site erythema [Recovered/Resolved]
  - Drug dose omission [Not Recovered/Not Resolved]
  - Abdominal distension [Recovered/Resolved]

NARRATIVE: CASE EVENT DATE: 20161221
